FAERS Safety Report 20258413 (Version 5)
Quarter: 2022Q4

REPORT INFORMATION
  Report Type: Report from Study
  Country: US (occurrence: US)
  Receive Date: 20211230
  Receipt Date: 20221003
  Transmission Date: 20230113
  Serious: Yes (Hospitalization)
  Sender: FDA-Public Use
  Company Number: US-GILEAD-2021-0563280

PATIENT
  Sex: Male
  Weight: 55 kg

DRUGS (10)
  1. SACITUZUMAB GOVITECAN [Suspect]
     Active Substance: SACITUZUMAB GOVITECAN
     Indication: Laryngeal cancer
     Dosage: 550 MG C1D1
     Route: 042
     Dates: start: 20211213, end: 20211213
  2. AUGMENTIN [Concomitant]
     Active Substance: AMOXICILLIN\CLAVULANATE POTASSIUM
     Dosage: UNK
     Dates: start: 20211216, end: 20211220
  3. LEVOTHYROXINE [Concomitant]
     Active Substance: LEVOTHYROXINE
     Dosage: UNK
     Dates: start: 20171128
  4. BUPRENORPHINE [Concomitant]
     Active Substance: BUPRENORPHINE
     Dosage: UNK
     Dates: start: 20211202
  5. LOPERAMIDE [Concomitant]
     Active Substance: LOPERAMIDE
  6. FENTANYL [Concomitant]
     Active Substance: FENTANYL
  7. MIRALAX [Concomitant]
     Active Substance: POLYETHYLENE GLYCOL 3350
     Dosage: UNK
     Dates: start: 20200601, end: 20211220
  8. OXYCODONE [Concomitant]
     Active Substance: OXYCODONE
     Dosage: UNK
     Dates: start: 20211104, end: 20211202
  9. ONDANSETRON [Concomitant]
     Active Substance: ONDANSETRON
     Dosage: UNK
     Dates: start: 20211007
  10. OLANZAPINE [Concomitant]
     Active Substance: OLANZAPINE
     Dosage: UNK
     Dates: start: 20211007

REACTIONS (1)
  - Colitis [Recovered/Resolved]

NARRATIVE: CASE EVENT DATE: 20211224
